FAERS Safety Report 9714379 (Version 2)
Quarter: 2014Q1

REPORT INFORMATION
  Report Type: Spontaneous
  Country: US (occurrence: US)
  Receive Date: 20131126
  Receipt Date: 20140106
  Transmission Date: 20141002
  Serious: Yes (Other)
  Sender: FDA-Public Use
  Company Number: US-PFIZER INC-2013337288

PATIENT
  Age: 42 Year
  Sex: Female
  Weight: 63.04 kg

DRUGS (6)
  1. LYRICA [Suspect]
     Indication: FIBROMYALGIA
     Dosage: UNK, 1XDAY
     Dates: start: 1992, end: 1997
  2. MORPHINE [Concomitant]
     Indication: BACK PAIN
     Dosage: UNK
  3. CELEBREX [Concomitant]
     Indication: BACK PAIN
     Dosage: 200 MG, DAILY
  4. OXYCODONE [Concomitant]
     Indication: BACK PAIN
     Dosage: 30 MG, AS NEEDED
  5. KLONOPIN [Concomitant]
     Indication: ANXIETY
     Dosage: UNK
  6. CELEXA [Concomitant]
     Indication: ANXIETY
     Dosage: 60 MG, DAILY

REACTIONS (4)
  - Weight increased [Not Recovered/Not Resolved]
  - Thought withdrawal [Not Recovered/Not Resolved]
  - Tongue disorder [Not Recovered/Not Resolved]
  - Speech disorder [Not Recovered/Not Resolved]
